FAERS Safety Report 25724602 (Version 1)
Quarter: 2025Q3

REPORT INFORMATION
  Report Type: Spontaneous
  Country: CN (occurrence: CN)
  Receive Date: 20250826
  Receipt Date: 20250826
  Transmission Date: 20251020
  Serious: Yes (Life-Threatening)
  Sender: ACCORD
  Company Number: CN-MLMSERVICE-20250807-PI605747-00128-4

PATIENT
  Age: 62 Year
  Sex: Male

DRUGS (64)
  1. CISPLATIN [Suspect]
     Active Substance: CISPLATIN
     Indication: Diffuse large B-cell lymphoma stage IV
     Dates: start: 20201110
  2. ETOPOSIDE [Suspect]
     Active Substance: ETOPOSIDE
     Indication: Diffuse large B-cell lymphoma stage IV
     Dates: start: 2020, end: 2020
  3. GEMCITABINE [Suspect]
     Active Substance: GEMCITABINE
     Indication: Diffuse large B-cell lymphoma stage IV
     Dates: start: 20201110
  4. CYCLOPHOSPHAMIDE [Suspect]
     Active Substance: CYCLOPHOSPHAMIDE
     Indication: Diffuse large B-cell lymphoma stage IV
     Dates: start: 2020, end: 2020
  5. DEXAMETHASONE [Suspect]
     Active Substance: DEXAMETHASONE
     Indication: Diffuse large B-cell lymphoma stage IV
     Dates: start: 2020
  6. DOXORUBICIN [Suspect]
     Active Substance: DOXORUBICIN
     Indication: Diffuse large B-cell lymphoma stage IV
     Dates: start: 2020, end: 2020
  7. LENALIDOMIDE [Suspect]
     Active Substance: LENALIDOMIDE
     Indication: Diffuse large B-cell lymphoma stage IV
     Dates: start: 20201110
  8. PREDNISONE [Suspect]
     Active Substance: PREDNISONE
     Indication: Diffuse large B-cell lymphoma stage IV
     Dates: start: 2020, end: 2020
  9. RITUXIMAB [Suspect]
     Active Substance: RITUXIMAB
     Indication: Diffuse large B-cell lymphoma stage IV
     Dates: start: 2020
  10. VINCRISTINE [Suspect]
     Active Substance: VINCRISTINE
     Indication: Diffuse large B-cell lymphoma stage IV
     Dates: start: 2020, end: 2020
  11. VINDESINE SULFATE [Suspect]
     Active Substance: VINDESINE SULFATE
     Indication: Diffuse large B-cell lymphoma stage IV
     Dates: start: 2020, end: 2020
  12. ETOPOSIDE [Suspect]
     Active Substance: ETOPOSIDE
     Indication: Metastases to spine
     Dates: start: 2020, end: 2020
  13. GEMCITABINE [Suspect]
     Active Substance: GEMCITABINE
     Indication: Metastases to spine
     Dates: start: 20201110
  14. CISPLATIN [Suspect]
     Active Substance: CISPLATIN
     Indication: Metastases to spine
     Dates: start: 20201110
  15. CYCLOPHOSPHAMIDE [Suspect]
     Active Substance: CYCLOPHOSPHAMIDE
     Indication: Metastases to pancreas
     Dates: start: 2020, end: 2020
  16. CYCLOPHOSPHAMIDE [Suspect]
     Active Substance: CYCLOPHOSPHAMIDE
     Indication: Metastases to pleura
     Dates: start: 2020, end: 2020
  17. CYCLOPHOSPHAMIDE [Suspect]
     Active Substance: CYCLOPHOSPHAMIDE
     Indication: Metastases to lymph nodes
     Dates: start: 2020, end: 2020
  18. CYCLOPHOSPHAMIDE [Suspect]
     Active Substance: CYCLOPHOSPHAMIDE
     Indication: Metastases to abdominal cavity
     Dates: start: 2020, end: 2020
  19. DOXORUBICIN [Suspect]
     Active Substance: DOXORUBICIN
     Indication: Metastases to pancreas
     Dates: start: 2020, end: 2020
  20. DOXORUBICIN [Suspect]
     Active Substance: DOXORUBICIN
     Indication: Metastases to pleura
     Dates: start: 2020, end: 2020
  21. DOXORUBICIN [Suspect]
     Active Substance: DOXORUBICIN
     Indication: Metastases to lymph nodes
     Dates: start: 2020, end: 2020
  22. DOXORUBICIN [Suspect]
     Active Substance: DOXORUBICIN
     Indication: Metastases to abdominal cavity
     Dates: start: 2020, end: 2020
  23. VINCRISTINE [Suspect]
     Active Substance: VINCRISTINE
     Indication: Metastases to pancreas
     Dates: start: 2020, end: 2020
  24. VINCRISTINE [Suspect]
     Active Substance: VINCRISTINE
     Indication: Metastases to pleura
     Dates: start: 2020, end: 2020
  25. VINCRISTINE [Suspect]
     Active Substance: VINCRISTINE
     Indication: Metastases to lymph nodes
     Dates: start: 2020, end: 2020
  26. PREDNISONE [Suspect]
     Active Substance: PREDNISONE
     Indication: Metastases to pancreas
     Dates: start: 2020, end: 2020
  27. PREDNISONE [Suspect]
     Active Substance: PREDNISONE
     Indication: Metastases to pleura
     Dates: start: 2020, end: 2020
  28. PREDNISONE [Suspect]
     Active Substance: PREDNISONE
     Indication: Metastases to lymph nodes
     Dates: start: 2020, end: 2020
  29. ETOPOSIDE [Suspect]
     Active Substance: ETOPOSIDE
     Indication: Metastases to pancreas
     Dates: start: 2020, end: 2020
  30. ETOPOSIDE [Suspect]
     Active Substance: ETOPOSIDE
     Indication: Metastases to pleura
     Dates: start: 2020, end: 2020
  31. ETOPOSIDE [Suspect]
     Active Substance: ETOPOSIDE
     Indication: Metastases to abdominal cavity
     Dates: start: 2020, end: 2020
  32. VINDESINE SULFATE [Suspect]
     Active Substance: VINDESINE SULFATE
     Indication: Metastases to spine
     Dates: start: 2020, end: 2020
  33. VINDESINE SULFATE [Suspect]
     Active Substance: VINDESINE SULFATE
     Indication: Metastases to pancreas
     Dates: start: 2020, end: 2020
  34. VINDESINE SULFATE [Suspect]
     Active Substance: VINDESINE SULFATE
     Indication: Metastases to pleura
     Dates: start: 2020, end: 2020
  35. VINDESINE SULFATE [Suspect]
     Active Substance: VINDESINE SULFATE
     Indication: Metastases to lymph nodes
     Dates: start: 2020, end: 2020
  36. VINDESINE SULFATE [Suspect]
     Active Substance: VINDESINE SULFATE
     Indication: Metastases to abdominal cavity
     Dates: start: 2020, end: 2020
  37. DEXAMETHASONE [Suspect]
     Active Substance: DEXAMETHASONE
     Indication: Metastases to spine
     Dates: start: 2020
  38. LENALIDOMIDE [Suspect]
     Active Substance: LENALIDOMIDE
     Indication: Metastases to spine
     Dates: start: 20201110
  39. RITUXIMAB [Suspect]
     Active Substance: RITUXIMAB
     Indication: Metastases to pancreas
     Dates: start: 2020
  40. RITUXIMAB [Suspect]
     Active Substance: RITUXIMAB
     Indication: Metastases to pleura
     Dates: start: 2020
  41. RITUXIMAB [Suspect]
     Active Substance: RITUXIMAB
     Indication: Metastases to lymph nodes
     Dates: start: 2020
  42. RITUXIMAB [Suspect]
     Active Substance: RITUXIMAB
     Indication: Metastases to abdominal cavity
     Dates: start: 2020
  43. DEXAMETHASONE [Suspect]
     Active Substance: DEXAMETHASONE
     Indication: Metastases to pancreas
     Dates: start: 2020
  44. DEXAMETHASONE [Suspect]
     Active Substance: DEXAMETHASONE
     Indication: Metastases to pleura
     Dates: start: 2020
  45. DEXAMETHASONE [Suspect]
     Active Substance: DEXAMETHASONE
     Indication: Metastases to lymph nodes
     Dates: start: 2020
  46. DEXAMETHASONE [Suspect]
     Active Substance: DEXAMETHASONE
     Indication: Metastases to abdominal cavity
     Dates: start: 2020
  47. LENALIDOMIDE [Suspect]
     Active Substance: LENALIDOMIDE
     Indication: Metastases to pancreas
     Dates: start: 20201110
  48. LENALIDOMIDE [Suspect]
     Active Substance: LENALIDOMIDE
     Indication: Metastases to pleura
     Dates: start: 20201110
  49. LENALIDOMIDE [Suspect]
     Active Substance: LENALIDOMIDE
     Indication: Metastases to lymph nodes
     Dates: start: 20201110
  50. LENALIDOMIDE [Suspect]
     Active Substance: LENALIDOMIDE
     Indication: Metastases to abdominal cavity
     Dates: start: 20201110
  51. GEMCITABINE [Suspect]
     Active Substance: GEMCITABINE
     Indication: Metastases to pancreas
     Dates: start: 20201110
  52. GEMCITABINE [Suspect]
     Active Substance: GEMCITABINE
     Indication: Metastases to pleura
     Dates: start: 20201110
  53. GEMCITABINE [Suspect]
     Active Substance: GEMCITABINE
     Indication: Metastases to lymph nodes
     Dates: start: 20201110
  54. GEMCITABINE [Suspect]
     Active Substance: GEMCITABINE
     Indication: Metastases to abdominal cavity
     Dates: start: 20201110
  55. CISPLATIN [Suspect]
     Active Substance: CISPLATIN
     Indication: Metastases to pancreas
     Dates: start: 20201110
  56. CISPLATIN [Suspect]
     Active Substance: CISPLATIN
     Indication: Metastases to pleura
     Dates: start: 20201110
  57. CISPLATIN [Suspect]
     Active Substance: CISPLATIN
     Indication: Metastases to lymph nodes
     Dates: start: 20201110
  58. CISPLATIN [Suspect]
     Active Substance: CISPLATIN
     Indication: Metastases to abdominal cavity
     Dates: start: 20201110
  59. ETOPOSIDE [Suspect]
     Active Substance: ETOPOSIDE
     Indication: Metastases to lymph nodes
     Dates: start: 2020, end: 2020
  60. RITUXIMAB [Suspect]
     Active Substance: RITUXIMAB
     Indication: Metastases to spine
     Dates: start: 2020
  61. CYCLOPHOSPHAMIDE [Suspect]
     Active Substance: CYCLOPHOSPHAMIDE
     Indication: Metastases to spine
     Dates: start: 2020, end: 2020
  62. DOXORUBICIN [Suspect]
     Active Substance: DOXORUBICIN
     Indication: Metastases to spine
     Dates: start: 2020, end: 2020
  63. VINCRISTINE [Suspect]
     Active Substance: VINCRISTINE
     Indication: Metastases to spine
     Dates: start: 2020, end: 2020
  64. PREDNISONE [Suspect]
     Active Substance: PREDNISONE
     Indication: Metastases to spine
     Dates: start: 2020, end: 2020

REACTIONS (1)
  - Disseminated mucormycosis [Recovered/Resolved]

NARRATIVE: CASE EVENT DATE: 20200101
